FAERS Safety Report 4828278-0 (Version None)
Quarter: 2005Q4

REPORT INFORMATION
  Report Type: 
  Country: None (occurrence: None)
  Receive Date: 20051115
  Receipt Date: 20050317
  Transmission Date: 20060501
  Serious: No
  Sender: FDA-Public Use
  Company Number: US-BRISTOL-MYERS SQUIBB COMPANY-12903597

PATIENT
  Age: 56 Year
  Sex: Male

DRUGS (16)
  1. EFAVIRENZ [Suspect]
     Indication: HIV INFECTION
     Route: 048
     Dates: start: 20040701
  2. LAMIVUDINE [Suspect]
     Indication: HIV INFECTION
     Route: 048
     Dates: start: 20040701
  3. TENOFOVIR [Suspect]
     Indication: HIV INFECTION
     Route: 048
     Dates: start: 20040701
  4. MULTI-VITAMIN [Suspect]
  5. ALBUTEROL [Concomitant]
     Route: 055
     Dates: start: 20041124
  6. TOLNAFTATE [Concomitant]
     Route: 061
     Dates: start: 20041224
  7. RANITIDINE [Concomitant]
     Route: 048
     Dates: start: 20041221
  8. NYSTATIN + TRIAM ACE [Concomitant]
     Route: 061
     Dates: start: 20041221
  9. ALLOPURINOL [Concomitant]
     Route: 048
     Dates: start: 20041229
  10. ATENOLOL [Concomitant]
     Route: 048
     Dates: start: 20041231
  11. ASPIRIN [Concomitant]
     Route: 048
     Dates: start: 20041231
  12. DOXAZOSIN [Concomitant]
     Route: 048
     Dates: start: 20041231
  13. ENALAPRIL [Concomitant]
     Route: 048
     Dates: start: 20041231
  14. CLONIDINE [Concomitant]
     Route: 048
     Dates: start: 20050102
  15. INDOMETHACIN [Concomitant]
     Route: 048
     Dates: start: 20050105
  16. AMLODIPINE [Concomitant]
     Route: 048
     Dates: start: 20050119

REACTIONS (2)
  - BLOOD CHOLESTEROL INCREASED [None]
  - SKIN DISORDER [None]
